FAERS Safety Report 20753062 (Version 1)
Quarter: 2022Q2

REPORT INFORMATION
  Report Type: Spontaneous
  Country: US (occurrence: None)
  Receive Date: 20220426
  Receipt Date: 20220426
  Transmission Date: 20220721
  Serious: No
  Sender: FDA-Public Use
  Company Number: US-ROCHE-2988402

PATIENT
  Sex: Male

DRUGS (3)
  1. ESBRIET [Suspect]
     Active Substance: PIRFENIDONE
     Indication: Idiopathic pulmonary fibrosis
     Dosage: TAKE 1 TABLET 3 TIMES DAILY FOR 1 WEEK
     Route: 048
  2. ESBRIET [Suspect]
     Active Substance: PIRFENIDONE
     Dosage: TAKE 2 TABLET 3 TIMES DAILY FOR 1 WEEK
     Route: 048
  3. ESBRIET [Suspect]
     Active Substance: PIRFENIDONE
     Dosage: TAKE 3 TABLET 3 TIMES DAILY FOR 1 WEEK
     Route: 048

REACTIONS (6)
  - Productive cough [Unknown]
  - Chest pain [Unknown]
  - Dyspnoea [Unknown]
  - Eructation [Unknown]
  - Acne [Unknown]
  - Diarrhoea [Unknown]
